FAERS Safety Report 22160215 (Version 1)
Quarter: 2023Q1

REPORT INFORMATION
  Report Type: Spontaneous
  Country: US (occurrence: None)
  Receive Date: 20230330
  Receipt Date: 20230330
  Transmission Date: 20230418
  Serious: Yes (Life-Threatening, Hospitalization)
  Sender: FDA-Public Use
  Company Number: None

PATIENT
  Age: 63 Year
  Sex: Female

DRUGS (2)
  1. ROCURONIUM [Suspect]
     Active Substance: ROCURONIUM BROMIDE
     Indication: Induction of anaesthesia
     Dosage: OTHER FREQUENCY : ONCE;?
     Route: 040
     Dates: start: 20220511, end: 20220511
  2. CEFAZOLIN [Suspect]
     Active Substance: CEFAZOLIN
     Indication: Antibiotic prophylaxis
     Dosage: OTHER FREQUENCY : ONCE;?
     Route: 040
     Dates: start: 20220511, end: 20220511

REACTIONS (3)
  - Anaphylactic shock [None]
  - Blood pressure decreased [None]
  - End-tidal CO2 decreased [None]

NARRATIVE: CASE EVENT DATE: 20220511
